FAERS Safety Report 23807633 (Version 1)
Quarter: 2024Q2

REPORT INFORMATION
  Report Type: Report from Study
  Country: US (occurrence: US)
  Receive Date: 20240502
  Receipt Date: 20240502
  Transmission Date: 20240716
  Serious: Yes (Other)
  Sender: FDA-Public Use
  Company Number: US-SUN PHARMACEUTICAL INDUSTRIES LTD-2024R1-444154

PATIENT

DRUGS (3)
  1. VALPROIC ACID [Interacting]
     Active Substance: VALPROIC ACID
     Indication: Seizure
     Dosage: UNK
     Route: 065
  2. ERTAPENEM [Suspect]
     Active Substance: ERTAPENEM
     Indication: Klebsiella infection
     Dosage: UNK
     Route: 065
  3. ERTAPENEM [Suspect]
     Active Substance: ERTAPENEM
     Indication: Pneumonia

REACTIONS (2)
  - Drug level below therapeutic [Unknown]
  - Drug interaction [Unknown]
